FAERS Safety Report 16598375 (Version 2)
Quarter: 2021Q3

REPORT INFORMATION
  Report Type: Spontaneous
  Country: US (occurrence: US)
  Receive Date: 20190719
  Receipt Date: 20210813
  Transmission Date: 20211014
  Serious: Yes (Hospitalization, Disabling)
  Sender: FDA-Public Use
  Company Number: US-TEVA-2019-US-1080447

PATIENT
  Sex: Male

DRUGS (3)
  1. VALSARTAN JUBILANT CADISTA [Suspect]
     Active Substance: VALSARTAN
     Indication: HYPERTENSION
     Dates: start: 2017, end: 2018
  2. VALSARTAN SOLCO [Suspect]
     Active Substance: VALSARTAN
     Indication: HYPERTENSION
     Dates: start: 2016, end: 2017
  3. VALSARTAN OHM LABORATORIES [Suspect]
     Active Substance: VALSARTAN
     Indication: HYPERTENSION
     Dates: start: 20140922, end: 2016

REACTIONS (4)
  - Gastric cancer [Not Recovered/Not Resolved]
  - Colorectal cancer [Not Recovered/Not Resolved]
  - Appendix cancer [Not Recovered/Not Resolved]
  - Recalled product administered [Unknown]
